FAERS Safety Report 9660511 (Version 3)
Quarter: 2014Q1

REPORT INFORMATION
  Report Type: Spontaneous
  Country: BR (occurrence: BR)
  Receive Date: 20131031
  Receipt Date: 20140203
  Transmission Date: 20141002
  Serious: Yes (Hospitalization, Other)
  Sender: FDA-Public Use
  Company Number: BR-NOVOPROD-391145

PATIENT
  Age: 7 Year
  Sex: Female
  Weight: 33 kg

DRUGS (2)
  1. LEVEMIR FLEXPEN [Suspect]
     Indication: TYPE 1 DIABETES MELLITUS
     Dosage: 28 IU MORNING 6 IU NIGHT
     Route: 065
     Dates: start: 2009
  2. NOVORAPID FLEXPEN [Suspect]
     Indication: TYPE 1 DIABETES MELLITUS
     Dosage: 2 IU, UNK
     Route: 058
     Dates: start: 2009

REACTIONS (4)
  - Hypoglycaemia [Recovered/Resolved]
  - Feeding disorder [Recovered/Resolved]
  - Malaise [Unknown]
  - Feeling abnormal [Unknown]
